FAERS Safety Report 16763064 (Version 8)
Quarter: 2020Q1

REPORT INFORMATION
  Report Type: Spontaneous
  Country: ES (occurrence: ES)
  Receive Date: 20190902
  Receipt Date: 20200101
  Transmission Date: 20200409
  Serious: Yes (Death)
  Sender: FDA-Public Use
  Company Number: ES-ROCHE-2393496

PATIENT
  Age: 48 Year
  Sex: Male

DRUGS (7)
  1. POLARAMINE [Concomitant]
     Active Substance: DEXCHLORPHENIRAMINE MALEATE
     Route: 042
     Dates: start: 20190822, end: 20190822
  2. RANITIDINE. [Concomitant]
     Active Substance: RANITIDINE
     Route: 065
  3. PARACETAMOL [Concomitant]
     Active Substance: ACETAMINOPHEN
     Route: 065
  4. SOLU MODERIN [Concomitant]
     Active Substance: METHYLPREDNISOLONE SODIUM SUCCINATE
     Route: 042
     Dates: start: 20190822, end: 20190822
  5. OCREVUS [Suspect]
     Active Substance: OCRELIZUMAB
     Route: 041
     Dates: start: 20190822
  6. OCREVUS [Suspect]
     Active Substance: OCRELIZUMAB
     Indication: PRIMARY PROGRESSIVE MULTIPLE SCLEROSIS
     Dosage: 3RD PERFUSION ON 22/AUG/2019
     Route: 042
     Dates: start: 20190214, end: 20190822
  7. OCREVUS [Suspect]
     Active Substance: OCRELIZUMAB
     Route: 042
     Dates: start: 201902

REACTIONS (8)
  - Kidney congestion [Fatal]
  - Arrhythmia [Fatal]
  - Pulmonary oedema [Fatal]
  - Oedematous kidney [Fatal]
  - Pulmonary congestion [Fatal]
  - Renal haemorrhage [Fatal]
  - Myocarditis post infection [Fatal]
  - Pulmonary haemorrhage [Fatal]

NARRATIVE: CASE EVENT DATE: 20190822
